FAERS Safety Report 5514057-8 (Version None)
Quarter: 2007Q4

REPORT INFORMATION
  Report Type: 
  Country: None (occurrence: None)
  Receive Date: 20071109
  Receipt Date: 20071109
  Transmission Date: 20080405
  Serious: Yes (Other)
  Sender: FDA-Public Use
  Company Number: None

PATIENT
  Sex: Male
  Weight: 77.1115 kg

DRUGS (1)
  1. COZAAR [Suspect]
     Indication: HYPERTENSION
     Dosage: 25MG 1XDAY PO
     Route: 048
     Dates: start: 20071001, end: 20071106

REACTIONS (2)
  - CONTUSION [None]
  - JOINT SWELLING [None]
